FAERS Safety Report 17134680 (Version 1)
Quarter: 2020Q3

REPORT INFORMATION
  Report Type: Spontaneous
  Country: US (occurrence: US)
  Receive Date: 20191210
  Receipt Date: 20191210
  Transmission Date: 20201105
  Serious: Yes (Death, Hospitalization)
  Sender: FDA-Public Use
  Company Number: US-MYLANLABS-2019M1122547

PATIENT
  Age: 16 Year
  Sex: Female

DRUGS (3)
  1. APIXABAN [Suspect]
     Active Substance: APIXABAN
     Indication: PRODUCT USED FOR UNKNOWN INDICATION
     Route: 065
  2. IBUPROFEN. [Suspect]
     Active Substance: IBUPROFEN
     Indication: PRODUCT USED FOR UNKNOWN INDICATION
     Route: 065
  3. FERROUS SULFATE. [Suspect]
     Active Substance: FERROUS SULFATE
     Indication: PRODUCT USED FOR UNKNOWN INDICATION
     Route: 065

REACTIONS (12)
  - Toxicity to various agents [Fatal]
  - Acute respiratory distress syndrome [Fatal]
  - Coma [Fatal]
  - Anion gap abnormal [Fatal]
  - Metabolic acidosis [Fatal]
  - Hypotension [Fatal]
  - Hepatotoxicity [Fatal]
  - Depressed level of consciousness [Fatal]
  - Acute lung injury [Fatal]
  - Coagulopathy [Fatal]
  - Thrombocytopenia [Fatal]
  - Leukocytosis [Fatal]
